FAERS Safety Report 6032406-1 (Version None)
Quarter: 2008Q4

REPORT INFORMATION
  Report Type: 
  Country: None (occurrence: None)
  Receive Date: 20081224
  Receipt Date: 20080919
  Transmission Date: 20090506
  Serious: No
  Sender: FDA-Public Use
  Company Number: 2008PV036740

PATIENT
  Age: 41 Year
  Sex: Male

DRUGS (5)
  1. SYMLIN [Suspect]
     Indication: TYPE 2 DIABETES MELLITUS
     Dosage: 15 MCG;BID;SC; 30 MCG;BID;SC
     Route: 058
     Dates: start: 20080910, end: 20080901
  2. SYMLIN [Suspect]
     Indication: TYPE 2 DIABETES MELLITUS
     Dosage: 15 MCG;BID;SC; 30 MCG;BID;SC
     Route: 058
     Dates: start: 20080901
  3. HUMALOG [Concomitant]
  4. LANTUS [Concomitant]
  5. PREVACID [Concomitant]

REACTIONS (3)
  - BLOOD GLUCOSE DECREASED [None]
  - FEELING ABNORMAL [None]
  - NAUSEA [None]
